FAERS Safety Report 13601900 (Version 1)
Quarter: 2017Q2

REPORT INFORMATION
  Report Type: Report from Study
  Country: CA (occurrence: CA)
  Receive Date: 20170601
  Receipt Date: 20170601
  Transmission Date: 20170830
  Serious: Yes (Other)
  Sender: FDA-Public Use
  Company Number: CA-JNJFOC-20170525266

PATIENT
  Age: 62 Year
  Sex: Female
  Weight: 70.2 kg

DRUGS (1)
  1. REMICADE [Suspect]
     Active Substance: INFLIXIMAB
     Indication: CROHN^S DISEASE
     Route: 042
     Dates: start: 20120217, end: 20170525

REACTIONS (3)
  - Off label use [Unknown]
  - Lung neoplasm malignant [Unknown]
  - Product use issue [Unknown]

NARRATIVE: CASE EVENT DATE: 20120217
